FAERS Safety Report 16606315 (Version 3)
Quarter: 2019Q3

REPORT INFORMATION
  Report Type: Spontaneous
  Country: PT (occurrence: PT)
  Receive Date: 20190721
  Receipt Date: 20190819
  Transmission Date: 20191004
  Serious: Yes (Other)
  Sender: FDA-Public Use
  Company Number: PT-CELLTRION INC.-2019PT022881

PATIENT

DRUGS (4)
  1. INFLIXIMAB (UNKNOWN) [Suspect]
     Active Substance: INFLIXIMAB
     Indication: SPONDYLITIS
     Dosage: 5 MG/KG, (8/8 WEEKS)
     Dates: start: 2014
  2. SULFASALAZINE. [Concomitant]
     Active Substance: SULFASALAZINE
     Indication: SPONDYLITIS
     Dosage: 1 G, DAILY
     Dates: start: 2014
  3. INFLIXIMAB (UNKNOWN) [Suspect]
     Active Substance: INFLIXIMAB
     Indication: CROHN^S DISEASE
     Dosage: UNK
     Dates: start: 201604
  4. SULFASALAZINE. [Concomitant]
     Active Substance: SULFASALAZINE
     Indication: CROHN^S DISEASE

REACTIONS (8)
  - Optic atrophy [Unknown]
  - Cellulitis orbital [Unknown]
  - Demyelination [Recovered/Resolved]
  - Sinusitis [Unknown]
  - Paraesthesia [Recovered/Resolved]
  - Ophthalmoplegia [Unknown]
  - Optic neuritis [Recovered/Resolved]
  - Hypoaesthesia eye [Unknown]

NARRATIVE: CASE EVENT DATE: 201508
